FAERS Safety Report 4422221-4 (Version None)
Quarter: 2004Q3

REPORT INFORMATION
  Report Type: 
  Country: None (occurrence: None)
  Receive Date: 20040806
  Receipt Date: 20040728
  Transmission Date: 20050211
  Serious: Yes (Other)
  Sender: FDA-Public Use
  Company Number: 2004225960US

PATIENT
  Age: 64 Year
  Sex: Female
  Weight: 65.8 kg

DRUGS (6)
  1. CELEBREX [Suspect]
     Indication: ARTHRITIS
     Dosage: 200 MG, QD, ORAL
     Route: 048
     Dates: start: 20020101
  2. ALLEGRA [Concomitant]
  3. CALCIUM [Concomitant]
  4. PREMARIN [Concomitant]
  5. ZETIA [Concomitant]
  6. FISH OIL (FISH OIL) [Concomitant]

REACTIONS (1)
  - COELIAC DISEASE [None]
